FAERS Safety Report 16117704 (Version 2)
Quarter: 2019Q2

REPORT INFORMATION
  Report Type: Spontaneous
  Country: CZ (occurrence: CZ)
  Receive Date: 20190326
  Receipt Date: 20190603
  Transmission Date: 20190711
  Serious: Yes (Other)
  Sender: FDA-Public Use
  Company Number: CZ-KADMON PHARMACEUTICALS, LLC-KAD201903-000205

PATIENT
  Age: 58 Year
  Sex: Male

DRUGS (2)
  1. HARVONI [Suspect]
     Active Substance: LEDIPASVIR\SOFOSBUVIR
     Indication: CHRONIC HEPATITIS C
     Dates: start: 20161010, end: 201612
  2. RIBAVIRIN. [Suspect]
     Active Substance: RIBAVIRIN
     Indication: CHRONIC HEPATITIS C
     Dates: start: 20161010, end: 201612

REACTIONS (3)
  - Paraparesis [Unknown]
  - Hepatocellular carcinoma [Unknown]
  - Back pain [Unknown]

NARRATIVE: CASE EVENT DATE: 20161121
